FAERS Safety Report 6268395-4 (Version None)
Quarter: 2009Q3

REPORT INFORMATION
  Report Type: 
  Country: None (occurrence: None)
  Receive Date: 20090715
  Receipt Date: 20080704
  Transmission Date: 20100115
  Serious: Yes (Other)
  Sender: FDA-Public Use
  Company Number: PHBS2008DK05029

PATIENT
  Age: 12 Year
  Sex: Female

DRUGS (2)
  1. BUDESONIDE [Suspect]
     Indication: ASTHMA
     Dosage: 160 UG, BID
  2. FORMOTEROL FUMARATE [Suspect]
     Indication: ASTHMA
     Dosage: 4.5 UG, BID

REACTIONS (5)
  - ADRENAL INSUFFICIENCY [None]
  - ASTHENIA [None]
  - FATIGUE [None]
  - PYREXIA [None]
  - STRESS [None]
